FAERS Safety Report 23798200 (Version 2)
Quarter: 2024Q2

REPORT INFORMATION
  Report Type: Report from Study
  Country: US (occurrence: US)
  Receive Date: 20240430
  Receipt Date: 20240531
  Transmission Date: 20240716
  Serious: Yes (Death, Other)
  Sender: FDA-Public Use
  Company Number: US-ACADIA PHARMACEUTICALS INC.-ACA-2024-PIM-002015

PATIENT
  Age: 93 Year
  Sex: Female

DRUGS (18)
  1. NUPLAZID [Suspect]
     Active Substance: PIMAVANSERIN TARTRATE
     Indication: Hallucination
     Dosage: 34 MILLIGRAM, QD
     Route: 065
     Dates: start: 20240401, end: 20240418
  2. NUPLAZID [Suspect]
     Active Substance: PIMAVANSERIN TARTRATE
     Indication: Delusion
  3. NUPLAZID [Suspect]
     Active Substance: PIMAVANSERIN TARTRATE
     Indication: Parkinson^s disease
  4. ACETAMINOPHEN [Concomitant]
     Active Substance: ACETAMINOPHEN
  5. ATROPINE [Concomitant]
     Active Substance: ATROPINE\ATROPINE SULFATE
  6. CARBIDOPA\LEVODOPA [Concomitant]
     Active Substance: CARBIDOPA\LEVODOPA
  7. CLONAZEPAM [Concomitant]
     Active Substance: CLONAZEPAM
  8. DOCUSATE [Concomitant]
     Active Substance: DOCUSATE
  9. FAMOTIDINE [Concomitant]
     Active Substance: FAMOTIDINE
  10. FLUTICASONE [Concomitant]
     Active Substance: FLUTICASONE
  11. IBUPROFEN [Concomitant]
     Active Substance: IBUPROFEN
  12. MYRBETRIQ [Concomitant]
     Active Substance: MIRABEGRON
  13. NITROFURANTOIN [Concomitant]
     Active Substance: NITROFURANTOIN
  14. OMEPRAZOLE [Concomitant]
     Active Substance: DONEPEZIL HYDROCHLORIDE\OMEPRAZOLE\OMEPRAZOLE MAGNESIUM
  15. RIVASTIGMINE [Concomitant]
     Active Substance: RIVASTIGMINE
  16. ROPINIROLE [Concomitant]
     Active Substance: ROPINIROLE
  17. SERTRALINE [Concomitant]
     Active Substance: SERTRALINE HYDROCHLORIDE
  18. TRAZODONE [Concomitant]
     Active Substance: TRAZODONE HYDROCHLORIDE

REACTIONS (2)
  - Death [Fatal]
  - Terminal state [Recovered/Resolved]

NARRATIVE: CASE EVENT DATE: 20240418
